FAERS Safety Report 8397444-2 (Version None)
Quarter: 2012Q2

REPORT INFORMATION
  Report Type: 
  Country: None (occurrence: None)
  Receive Date: 20120529
  Receipt Date: 20120529
  Transmission Date: 20120825
  Serious: Yes (Other)
  Sender: FDA-Public Use
  Company Number: None

PATIENT
  Age: 32 Year
  Sex: Female
  Weight: 103.8737 kg

DRUGS (2)
  1. METRONIDAZOLE [Suspect]
     Indication: BACTERIAL INFECTION
     Dosage: 500MG TWICE A DAY PO
     Route: 048
     Dates: start: 20120518, end: 20120525
  2. GILENYA [Suspect]
     Indication: MULTIPLE SCLEROSIS
     Dosage: 1 PILL PER DAY ONCE A DAY PO FOREVER
     Route: 048

REACTIONS (1)
  - OEDEMA PERIPHERAL [None]
